FAERS Safety Report 10238175 (Version 5)
Quarter: 2015Q2

REPORT INFORMATION
  Report Type: Report from Study
  Country: US (occurrence: US)
  Receive Date: 20140616
  Receipt Date: 20150609
  Transmission Date: 20150821
  Serious: Yes (Hospitalization, Other)
  Sender: FDA-Public Use
  Company Number: US-SA-2014SA078238

PATIENT
  Age: 64 Year
  Sex: Female

DRUGS (1)
  1. FABRAZYME [Suspect]
     Active Substance: AGALSIDASE BETA
     Indication: FABRY^S DISEASE
     Dosage: INITIAL SHIP DATE: 06-DEC-2004
     Route: 041
     Dates: start: 20041221

REACTIONS (11)
  - Dehydration [Recovered/Resolved]
  - Decreased appetite [Recovered/Resolved]
  - Fatigue [Recovered/Resolved]
  - Blood pressure abnormal [Unknown]
  - Pain [Unknown]
  - Vomiting [Unknown]
  - Hypersensitivity [Unknown]
  - Catheterisation cardiac [Unknown]
  - Dyspnoea [Unknown]
  - Cough [Unknown]
  - Influenza like illness [Unknown]

NARRATIVE: CASE EVENT DATE: 2014
